FAERS Safety Report 8501222-0 (Version None)
Quarter: 2012Q3

REPORT INFORMATION
  Report Type: 
  Country: None (occurrence: None)
  Receive Date: 20120710
  Receipt Date: 20120625
  Transmission Date: 20120928
  Serious: Yes (Hospitalization, Other)
  Sender: FDA-Public Use
  Company Number: US-ARROW-2012-11465

PATIENT
  Age: 36 Year
  Sex: Female

DRUGS (9)
  1. ACETAMINOPHEN [Suspect]
     Indication: PRODUCT USED FOR UNKNOWN INDICATION
     Dosage: UNK
     Route: 065
  2. LAMOTRIGINE [Suspect]
     Indication: BIPOLAR DISORDER
     Dosage: UNK
     Route: 065
  3. BUPROPION HCL [Suspect]
     Indication: BIPOLAR DISORDER
     Dosage: UNK
     Route: 065
  4. TRAZODONE HCL [Suspect]
     Indication: BIPOLAR DISORDER
     Dosage: UNK
     Route: 065
  5. LITHIUM CARBONATE [Suspect]
     Indication: BIPOLAR DISORDER
     Dosage: UNK
     Route: 065
  6. LOXAPINE SUCCINATE [Suspect]
     Indication: BIPOLAR DISORDER
     Dosage: UNK
     Route: 065
  7. SERTRALINE HYDROCHLORIDE [Suspect]
     Indication: BIPOLAR DISORDER
     Dosage: UNK
     Route: 065
  8. VENLAFAXINE HYDROCHLORIDE [Suspect]
     Indication: BIPOLAR DISORDER
     Dosage: UNK %, UNK
     Route: 065
  9. ONDANSETRON HCL [Suspect]
     Indication: PRODUCT USED FOR UNKNOWN INDICATION
     Dosage: UNK
     Route: 065

REACTIONS (2)
  - NEUROLEPTIC MALIGNANT SYNDROME [None]
  - DRUG LEVEL INCREASED [None]
